FAERS Safety Report 4431785-6 (Version None)
Quarter: 2004Q3

REPORT INFORMATION
  Report Type: 
  Country: None (occurrence: None)
  Receive Date: 20040818
  Receipt Date: 20040804
  Transmission Date: 20050211
  Serious: Yes (Other)
  Sender: FDA-Public Use
  Company Number: TUK200400093

PATIENT
  Age: 72 Year
  Sex: Male

DRUGS (5)
  1. ACTOS [Suspect]
     Indication: DIABETES MELLITUS
     Dosage: PER ORAL
     Route: 048
     Dates: start: 20020718, end: 20040601
  2. SODIUM CHLORIDE INJ [Concomitant]
  3. ERYTHROPED A (ERYTHROMYCIN ETHYLSUCCINATE) [Concomitant]
  4. SALAMOL (SALBUTAMOL SULFATE) [Concomitant]
  5. POVIDONE (POLYVIDONE) [Concomitant]

REACTIONS (5)
  - BALANCE DISORDER [None]
  - DIZZINESS [None]
  - DRUG WITHDRAWAL SYNDROME [None]
  - FLUID RETENTION [None]
  - SYNCOPE [None]
